FAERS Safety Report 21030739 (Version 1)
Quarter: 2022Q3

REPORT INFORMATION
  Report Type: Spontaneous
  Country: US (occurrence: None)
  Receive Date: 20220701
  Receipt Date: 20220701
  Transmission Date: 20221027
  Serious: No
  Sender: FDA-Public Use
  Company Number: US-ROCHE-3001651

PATIENT
  Sex: Female

DRUGS (16)
  1. ACTEMRA [Suspect]
     Active Substance: TOCILIZUMAB
     Indication: Body mass index abnormal
     Dosage: STRENGTH: 162MG/0.9 ML
     Route: 058
     Dates: start: 202112
  2. ACTEMRA [Suspect]
     Active Substance: TOCILIZUMAB
  3. BUPROPION HYDROCHLORIDE [Concomitant]
     Active Substance: BUPROPION HYDROCHLORIDE
  4. CLOBETASOL PROPIONATE [Concomitant]
     Active Substance: CLOBETASOL PROPIONATE
     Dosage: 0.05%
  5. LORATADINE [Concomitant]
     Active Substance: LORATADINE
  6. LYRICA [Concomitant]
     Active Substance: PREGABALIN
  7. OTEZLA [Concomitant]
     Active Substance: APREMILAST
  8. PANTOPRAZOLE [Concomitant]
     Active Substance: PANTOPRAZOLE
  9. SINGULAIR [Concomitant]
     Active Substance: MONTELUKAST SODIUM
  10. AMITRIPTYLINE [Concomitant]
     Active Substance: AMITRIPTYLINE
  11. FOLIC ACID [Concomitant]
     Active Substance: FOLIC ACID
  12. HYDROCORTISONE VALERATE [Concomitant]
     Active Substance: HYDROCORTISONE VALERATE
  13. LISINOPRIL [Concomitant]
     Active Substance: LISINOPRIL
  14. NORETHINDRONE [Concomitant]
     Active Substance: NORETHINDRONE
  15. TOVIAZ [Concomitant]
     Active Substance: FESOTERODINE FUMARATE
  16. VOLTAREN [Concomitant]
     Active Substance: DICLOFENAC SODIUM

REACTIONS (9)
  - Blood pressure increased [Not Recovered/Not Resolved]
  - Musculoskeletal stiffness [Not Recovered/Not Resolved]
  - Pain [Not Recovered/Not Resolved]
  - Ill-defined disorder [Not Recovered/Not Resolved]
  - Gait inability [Not Recovered/Not Resolved]
  - Unevaluable event [Not Recovered/Not Resolved]
  - Sneezing [Not Recovered/Not Resolved]
  - Rhinorrhoea [Not Recovered/Not Resolved]
  - Sleep disorder [Not Recovered/Not Resolved]
